FAERS Safety Report 24773418 (Version 1)
Quarter: 2024Q4

REPORT INFORMATION
  Report Type: Spontaneous
  Country: DE (occurrence: DE)
  Receive Date: 20241225
  Receipt Date: 20241225
  Transmission Date: 20250115
  Serious: Yes (Hospitalization, Other)
  Sender: AUROBINDO
  Company Number: DE-002147023-NVSC2024DE167531

PATIENT
  Sex: Male

DRUGS (12)
  1. IBUPROFEN [Suspect]
     Active Substance: IBUPROFEN
     Indication: Product used for unknown indication
     Dosage: 600 MILLIGRAM
     Route: 065
     Dates: start: 20201015
  2. IBUPROFEN [Suspect]
     Active Substance: IBUPROFEN
     Dosage: 200 MILLIGRAM
     Route: 065
     Dates: start: 20201015
  3. IBUPROFEN [Suspect]
     Active Substance: IBUPROFEN
     Dosage: 300 MILLIGRAM
     Route: 065
     Dates: start: 20201015
  4. IBUPROFEN [Suspect]
     Active Substance: IBUPROFEN
     Dosage: 600 MILLIGRAM
     Route: 065
     Dates: start: 20220815, end: 20220920
  5. ETORICOXIB [Suspect]
     Active Substance: ETORICOXIB
     Indication: Product used for unknown indication
     Dosage: 90 MILLIGRAM
     Route: 065
     Dates: start: 20240611
  6. COSENTYX [Suspect]
     Active Substance: SECUKINUMAB
     Indication: Axial spondyloarthritis
     Dosage: 300 MILLIGRAM
     Route: 065
     Dates: start: 20180115
  7. COSENTYX [Suspect]
     Active Substance: SECUKINUMAB
     Dosage: 150 MILLIGRAM
     Route: 065
     Dates: start: 20180115, end: 20201215
  8. COSENTYX [Suspect]
     Active Substance: SECUKINUMAB
     Dosage: 150 MILLIGRAM
     Route: 065
     Dates: start: 20210215, end: 20220715
  9. COSENTYX [Suspect]
     Active Substance: SECUKINUMAB
     Dosage: 150 MG, Q4W
     Route: 065
     Dates: start: 20220915, end: 20230620
  10. COSENTYX [Suspect]
     Active Substance: SECUKINUMAB
     Dosage: 150 MG, Q4W
     Route: 065
     Dates: start: 20230921
  11. ACEMETACIN [Suspect]
     Active Substance: ACEMETACIN
     Indication: Product used for unknown indication
     Dosage: 180 MILLIGRAM
     Route: 065
     Dates: start: 20181121, end: 20181210
  12. ACEMETACIN [Suspect]
     Active Substance: ACEMETACIN
     Dosage: 180 MILLIGRAM
     Route: 065
     Dates: start: 20191113

REACTIONS (10)
  - Leukopenia [Unknown]
  - C-reactive protein increased [Unknown]
  - Fatigue [Unknown]
  - Asthenia [Unknown]
  - Headache [Unknown]
  - Night sweats [Unknown]
  - Chills [Unknown]
  - Decreased appetite [Unknown]
  - Axial spondyloarthritis [Unknown]
  - Condition aggravated [Unknown]

NARRATIVE: CASE EVENT DATE: 20230701
